FAERS Safety Report 8792875 (Version 3)
Quarter: 2014Q1

REPORT INFORMATION
  Report Type: Spontaneous
  Country: JP (occurrence: JP)
  Receive Date: 20120918
  Receipt Date: 20140320
  Transmission Date: 20141002
  Serious: Yes (Hospitalization)
  Sender: FDA-Public Use
  Company Number: JP-PFIZER INC-2012214408

PATIENT
  Age: 76 Year
  Sex: Female

DRUGS (4)
  1. JZOLOFT [Suspect]
     Indication: DEPRESSION
     Dosage: 25 MG, 1X/DAY
     Route: 048
     Dates: start: 20120803, end: 20120813
  2. DOGMATYL [Concomitant]
     Dosage: UNK
     Route: 048
  3. MYSLEE [Concomitant]
     Dosage: UNK
     Route: 048
  4. SOLANAX [Concomitant]
     Dosage: UNK
     Route: 048

REACTIONS (3)
  - Hyponatraemia [Recovering/Resolving]
  - Delirium [Recovering/Resolving]
  - Inappropriate antidiuretic hormone secretion [Recovering/Resolving]
